FAERS Safety Report 6247672-7 (Version None)
Quarter: 2009Q2

REPORT INFORMATION
  Report Type: 
  Country: None (occurrence: None)
  Receive Date: 20090626
  Receipt Date: 20090615
  Transmission Date: 20091009
  Serious: Yes (Other)
  Sender: FDA-Public Use
  Company Number: US-ELI_LILLY_AND_COMPANY-US200803003884

PATIENT
  Sex: Female
  Weight: 99.773 kg

DRUGS (3)
  1. ZYPREXA [Suspect]
     Indication: DEPRESSION
     Dosage: 5 MG, UNK
     Dates: start: 20050101, end: 20050201
  2. SEROQUEL [Concomitant]
     Dates: start: 20040101, end: 20070101
  3. RISPERDAL [Concomitant]
     Dates: start: 20040101, end: 20070101

REACTIONS (3)
  - DIABETES MELLITUS [None]
  - HEPATITIS VIRAL [None]
  - OFF LABEL USE [None]
